FAERS Safety Report 9624778 (Version 3)
Quarter: 2013Q4

REPORT INFORMATION
  Report Type: Report from Study
  Country: CA (occurrence: CA)
  Receive Date: 20131015
  Receipt Date: 20131210
  Transmission Date: 20140711
  Serious: Yes (Hospitalization, Other)
  Sender: FDA-Public Use
  Company Number: CA-ABBVIE-11P-028-0877115-00

PATIENT
  Age: 57 Year
  Sex: Male

DRUGS (3)
  1. HUMIRA [Suspect]
     Indication: CROHN^S DISEASE
     Route: 058
     Dates: start: 20090609, end: 20110430
  2. COMMERCIAL HUMIRA [Concomitant]
     Indication: CROHN^S DISEASE
     Route: 058
     Dates: start: 20081010
  3. PARACETAMOL [Concomitant]
     Indication: ABDOMINAL PAIN
     Dates: start: 20110301

REACTIONS (1)
  - Bladder cancer stage I, without cancer in situ [Recovered/Resolved]
